FAERS Safety Report 20699351 (Version 2)
Quarter: 2022Q2

REPORT INFORMATION
  Report Type: Spontaneous
  Country: SA (occurrence: SA)
  Receive Date: 20220412
  Receipt Date: 20220616
  Transmission Date: 20220721
  Serious: Yes (Hospitalization, Congenital Anomaly)
  Sender: FDA-Public Use
  Company Number: SA-NOVARTISPH-NVSC2022SA081830

PATIENT
  Sex: Female

DRUGS (5)
  1. MYCOPHENOLATE SODIUM [Suspect]
     Active Substance: MYCOPHENOLATE SODIUM
     Indication: Foetal exposure during pregnancy
     Dosage: MATERNAL DOSE: 1G, BID
     Route: 064
  2. PERINDOPRIL [Suspect]
     Active Substance: PERINDOPRIL
     Indication: Foetal exposure during pregnancy
     Dosage: MATERNAL DOSE: UNK
     Route: 064
  3. PREDNISOLONE [Suspect]
     Active Substance: PREDNISOLONE
     Indication: Foetal exposure during pregnancy
     Dosage: MATERNAL DOSE: UNK
     Route: 064
  4. HYDROXYCHLOROQUINE [Suspect]
     Active Substance: HYDROXYCHLOROQUINE
     Indication: Foetal exposure during pregnancy
     Dosage: MATERNAL DOSE: UNK
     Route: 064
  5. BISOPROLOL [Suspect]
     Active Substance: BISOPROLOL
     Indication: Foetal exposure during pregnancy
     Dosage: MATERNAL DOSE: UNK
     Route: 064

REACTIONS (12)
  - Premature baby [Unknown]
  - Low birth weight baby [Unknown]
  - Bradycardia neonatal [Unknown]
  - Neonatal respiratory distress [Unknown]
  - Hypertelorism [Unknown]
  - Microtia [Unknown]
  - Micrognathia [Unknown]
  - Cleft lip and palate [Unknown]
  - Coloboma [Unknown]
  - Kidney malformation [Unknown]
  - Congenital nasal septum deviation [Unknown]
  - Foetal exposure during pregnancy [Unknown]
